FAERS Safety Report 11619626 (Version 4)
Quarter: 2015Q4

REPORT INFORMATION
  Report Type: Report from Study
  Country: US (occurrence: US)
  Receive Date: 20151012
  Receipt Date: 20151230
  Transmission Date: 20160304
  Serious: Yes (Other)
  Sender: FDA-Public Use
  Company Number: US-ACTELION-A-NJ2015-122690

PATIENT
  Age: 65 Year
  Sex: Female

DRUGS (3)
  1. RIOCIGUAT [Concomitant]
     Active Substance: RIOCIGUAT
  2. ELIQUIS [Concomitant]
     Active Substance: APIXABAN
  3. MACITENTAN [Suspect]
     Active Substance: MACITENTAN
     Indication: PULMONARY HYPERTENSION
     Dosage: 10 MG, QD
     Route: 048
     Dates: start: 20150423

REACTIONS (15)
  - Vein disorder [Unknown]
  - Pain in extremity [Unknown]
  - Productive cough [Unknown]
  - Food poisoning [Unknown]
  - Arthralgia [Unknown]
  - Oedema peripheral [Unknown]
  - Hypertension [Unknown]
  - Peripheral swelling [Unknown]
  - Paraesthesia [Unknown]
  - Dyspnoea exertional [Unknown]
  - Myocardial infarction [Unknown]
  - Seasonal allergy [Unknown]
  - Cough [Unknown]
  - Hypoaesthesia [Unknown]
  - Neuropathy peripheral [Unknown]
